FAERS Safety Report 9961760 (Version 1)
Quarter: 2014Q1

REPORT INFORMATION
  Report Type: Report from Study
  Country: US (occurrence: US)
  Receive Date: 20140305
  Receipt Date: 20140305
  Transmission Date: 20141002
  Serious: No
  Sender: FDA-Public Use
  Company Number: US-ABBVIE-13P-163-1111249-00

PATIENT
  Age: 68 Year
  Sex: Female

DRUGS (6)
  1. HUMIRA [Suspect]
     Indication: CROHN^S DISEASE
     Dates: start: 20130429
  2. PENTASA [Concomitant]
     Indication: ANTIINFLAMMATORY THERAPY
     Dosage: 500 MG 2 CAPSULES 4X/DAY
  3. ATENOLOL [Concomitant]
     Indication: PALPITATIONS
     Dosage: 25MG 2X/DAY
  4. LEVOTHYROXINE [Concomitant]
     Indication: THYROID DISORDER
  5. VITAMIN D3 [Concomitant]
     Indication: PRODUCT USED FOR UNKNOWN INDICATION
     Dosage: 2000 IU DAILY
  6. CALCIUM WITH VITAMIN D [Concomitant]
     Indication: OSTEOPENIA
     Dosage: 600 MG AND 200 IU

REACTIONS (2)
  - Abdominal discomfort [Recovering/Resolving]
  - Nausea [Recovering/Resolving]
